FAERS Safety Report 5283855-0 (Version None)
Quarter: 2007Q1

REPORT INFORMATION
  Report Type: 
  Country: None (occurrence: None)
  Receive Date: 20070327
  Receipt Date: 20070319
  Transmission Date: 20070707
  Serious: Yes (Death)
  Sender: FDA-Public Use
  Company Number: 2007-01503

PATIENT
  Age: 52 Year

DRUGS (3)
  1. LORAZEPAM [Suspect]
  2. LISINOPRIL [Suspect]
  3. CHARCOAL, ACTIVATED (CHARCOAL, ACTIVATED) [Suspect]

REACTIONS (1)
  - DEATH [None]
